FAERS Safety Report 4694823-1 (Version None)
Quarter: 2005Q2

REPORT INFORMATION
  Report Type: 
  Country: None (occurrence: None)
  Receive Date: 20050620
  Receipt Date: 20050614
  Transmission Date: 20051028
  Serious: Yes (Hospitalization)
  Sender: FDA-Public Use
  Company Number: 2005UW09142

PATIENT
  Age: 74 Year
  Sex: Male

DRUGS (11)
  1. IRESSA [Suspect]
     Indication: TONSIL CANCER
     Route: 048
     Dates: start: 20050420, end: 20050506
  2. IRESSA [Suspect]
     Route: 048
     Dates: start: 20050512, end: 20050515
  3. IRESSA [Suspect]
     Route: 048
     Dates: start: 20050524, end: 20050525
  4. CISPLATIN [Suspect]
     Indication: TONSIL CANCER
     Dosage: 5 COURSES
  5. RADIATION THERAPY [Suspect]
     Indication: TONSIL CANCER
     Dosage: 43.20 GRAY OVER 4.5 WEEKS
  6. STANFORD MOUTHWASH [Concomitant]
  7. VICODIN [Concomitant]
     Dosage: 3-5 TIMES DAILY
  8. ZOCOR [Concomitant]
  9. MONOPRIL [Concomitant]
  10. CARDURA [Concomitant]
  11. OMEPRAZOLE [Concomitant]
     Route: 048

REACTIONS (16)
  - ABDOMINAL PAIN UPPER [None]
  - BURNING SENSATION [None]
  - DEHYDRATION [None]
  - DIARRHOEA [None]
  - DIZZINESS [None]
  - DYSPHAGIA [None]
  - ELECTROLYTE IMBALANCE [None]
  - FATIGUE [None]
  - HAEMATEMESIS [None]
  - IMPLANT SITE REACTION [None]
  - NAUSEA [None]
  - ORAL INTAKE REDUCED [None]
  - PNEUMONIA [None]
  - PYREXIA [None]
  - RASH [None]
  - VOMITING [None]
